FAERS Safety Report 24800331 (Version 2)
Quarter: 2025Q1

REPORT INFORMATION
  Report Type: Spontaneous
  Country: US (occurrence: US)
  Receive Date: 20250102
  Receipt Date: 20250203
  Transmission Date: 20250409
  Serious: Yes (Hospitalization)
  Sender: HALOZYME
  Company Number: US-HALOZYME THERAPEUTICS, INC.-2024-US-TX -12383

PATIENT

DRUGS (2)
  1. XYOSTED [Suspect]
     Active Substance: TESTOSTERONE ENANTHATE
     Indication: Blood testosterone decreased
     Route: 058
     Dates: start: 202405, end: 20241120
  2. WARFARIN [Concomitant]
     Active Substance: WARFARIN
     Indication: Thrombosis

REACTIONS (2)
  - Cerebrovascular accident [Recovered/Resolved]
  - Pneumonia [Recovered/Resolved]

NARRATIVE: CASE EVENT DATE: 20240101
